FAERS Safety Report 22631750 (Version 9)
Quarter: 2024Q2

REPORT INFORMATION
  Report Type: Report from Study
  Country: CL (occurrence: CL)
  Receive Date: 20230623
  Receipt Date: 20240509
  Transmission Date: 20240716
  Serious: Yes (Other)
  Sender: FDA-Public Use
  Company Number: CL-002147023-NVSC2023CL111429

PATIENT
  Age: 38 Year
  Sex: Female

DRUGS (9)
  1. COSENTYX [Suspect]
     Active Substance: SECUKINUMAB
     Indication: Axial spondyloarthritis
     Dosage: 150 MG, QMO
     Route: 058
     Dates: start: 20230503
  2. COSENTYX [Suspect]
     Active Substance: SECUKINUMAB
     Dosage: UNK (3RD LOADING DOSE) (LAST DOSE RECEIVED ON 28 JUN 2023)
     Route: 065
     Dates: start: 20230517
  3. MEDROL [Concomitant]
     Active Substance: METHYLPREDNISOLONE
     Indication: Product used for unknown indication
     Dosage: (STRENGTH: 16 MG), (1 AT BREAKFAST, 1 LUNCH)
     Route: 065
  4. MEDROL [Concomitant]
     Active Substance: METHYLPREDNISOLONE
     Dosage: (STRENGTH: 16 MG), (1 AT BREAKFAST, 1/2 LUNCH) FOR 7 DAYS
     Route: 065
  5. MEDROL [Concomitant]
     Active Substance: METHYLPREDNISOLONE
     Dosage: (STRENGTH: 16 MG), 1/2 AT BREAKFAST, 1 LUNCH) FOR 7 DAYS
     Route: 065
  6. MEDROL [Concomitant]
     Active Substance: METHYLPREDNISOLONE
     Dosage: (STRENGTH: 4MG), (2 TABLET AT BREAKFAST, 1 AT LUNCH) FOR 7 DAYS
     Route: 065
  7. MEDROL [Concomitant]
     Active Substance: METHYLPREDNISOLONE
     Dosage: (STRENGTH: 4MG), (1TABLET AT BREAKFAST, 1 AT LUNCH) FOR 7 DAYS
     Route: 065
  8. CALCIUM CARBONATE\CHOLECALCIFEROL [Concomitant]
     Active Substance: CALCIUM CARBONATE\CHOLECALCIFEROL
     Indication: Product used for unknown indication
     Dosage: UNK UNK, QD (1 DAY)
     Route: 065
  9. TRAMADOL [Concomitant]
     Active Substance: TRAMADOL\TRAMADOL HYDROCHLORIDE
     Indication: Product used for unknown indication
     Dosage: 1 DOSAGE FORM, Q12H (1 EVERY 12 HOURS IF SYMPTOMS PERSIST.)
     Route: 065

REACTIONS (26)
  - Neoplasm malignant [Unknown]
  - Blindness [Unknown]
  - Choroiditis [Not Recovered/Not Resolved]
  - Neck pain [Recovered/Resolved]
  - Groin pain [Recovered/Resolved]
  - Fatigue [Recovered/Resolved]
  - Gastrointestinal disorder [Recovered/Resolved]
  - Arthralgia [Recovered/Resolved]
  - Diarrhoea [Recovered/Resolved]
  - Diarrhoea [Unknown]
  - Pain [Recovered/Resolved]
  - Musculoskeletal stiffness [Unknown]
  - Gait disturbance [Not Recovered/Not Resolved]
  - Dysstasia [Recovered/Resolved]
  - Arthritis [Recovering/Resolving]
  - Rotator cuff syndrome [Not Recovered/Not Resolved]
  - Neck pain [Not Recovered/Not Resolved]
  - Mobility decreased [Unknown]
  - Knee deformity [Unknown]
  - Vitreous disorder [Unknown]
  - Arthralgia [Unknown]
  - Spinal pain [Unknown]
  - Dysstasia [Unknown]
  - Inflammation [Unknown]
  - Anaemia [Unknown]
  - Product availability issue [Unknown]

NARRATIVE: CASE EVENT DATE: 20230511
